FAERS Safety Report 5353417-5 (Version None)
Quarter: 2007Q2

REPORT INFORMATION
  Report Type: 
  Country: None (occurrence: None)
  Receive Date: 20070612
  Receipt Date: 20070531
  Transmission Date: 20071010
  Serious: Yes (Hospitalization)
  Sender: FDA-Public Use
  Company Number: JP-JNJFOC-20030900370

PATIENT
  Sex: Male
  Weight: 72 kg

DRUGS (26)
  1. REMICADE [Suspect]
     Route: 042
  2. REMICADE [Suspect]
     Route: 042
  3. REMICADE [Suspect]
     Route: 042
  4. REMICADE [Suspect]
     Route: 042
  5. REMICADE [Suspect]
     Indication: RHEUMATOID ARTHRITIS
     Route: 042
  6. PREDONIN [Suspect]
     Route: 048
  7. PREDONIN [Suspect]
     Route: 048
  8. PREDONIN [Suspect]
     Route: 048
  9. PREDONIN [Suspect]
     Indication: RHEUMATOID ARTHRITIS
     Route: 048
  10. AZULFIDINE EN-TABS [Suspect]
     Indication: DRUG USE FOR UNKNOWN INDICATION
     Route: 048
     Dates: start: 20030517, end: 20030901
  11. METHOTREXATE [Concomitant]
     Route: 048
  12. METHOTREXATE [Concomitant]
     Route: 048
  13. METHOTREXATE [Concomitant]
     Route: 048
  14. METHOTREXATE [Concomitant]
     Route: 048
  15. METHOTREXATE [Concomitant]
     Indication: DRUG USE FOR UNKNOWN INDICATION
     Route: 048
  16. RHEUMATREX [Concomitant]
     Route: 048
  17. RHEUMATREX [Concomitant]
     Route: 048
  18. RHEUMATREX [Concomitant]
     Route: 048
  19. BUFFERIN 330 [Concomitant]
     Route: 048
  20. SHIOSOL [Concomitant]
     Route: 042
  21. SHIOSOL [Concomitant]
     Route: 042
  22. FOLIAMIN [Concomitant]
     Route: 048
  23. SELBEX [Concomitant]
     Route: 048
  24. ALTAT [Concomitant]
     Route: 048
  25. BONARON [Concomitant]
     Route: 048
  26. KEBERA- S [Concomitant]
     Route: 042

REACTIONS (1)
  - ATRIAL FIBRILLATION [None]
